FAERS Safety Report 15819309 (Version 5)
Quarter: 2019Q1

REPORT INFORMATION
  Report Type: Report from Study
  Country: None (occurrence: GR)
  Receive Date: 20190114
  Receipt Date: 20190215
  Transmission Date: 20190417
  Serious: Yes (Hospitalization)
  Sender: FDA-Public Use
  Company Number: GR-ABBVIE-19S-066-2620261-00

PATIENT
  Age: 64 Year
  Sex: Male
  Weight: 79 kg

DRUGS (7)
  1. DUODOPA [Suspect]
     Active Substance: CARBIDOPA\LEVODOPA
     Dosage: MD: 6.8ML; CR: 3.6ML/H; ED: 1.7ML
     Route: 050
     Dates: start: 201901, end: 20190130
  2. DUODOPA [Suspect]
     Active Substance: CARBIDOPA\LEVODOPA
     Dosage: MD:6.8ML; CD:3.4ML/H; ED:1.3ML
     Route: 050
     Dates: start: 20190110, end: 20190111
  3. REMERON [Concomitant]
     Active Substance: MIRTAZAPINE
     Indication: PRODUCT USED FOR UNKNOWN INDICATION
     Dosage: ONCE EVERY NIGHT
     Route: 048
  4. DUODOPA [Suspect]
     Active Substance: CARBIDOPA\LEVODOPA
     Indication: PARKINSON^S DISEASE
     Dosage: MD:6.8ML; CR:2.4ML/H; ED:1.0ML
     Route: 050
     Dates: start: 20090917, end: 20190110
  5. XANAX [Concomitant]
     Active Substance: ALPRAZOLAM
     Indication: INSOMNIA
     Dosage: ONCE EVERY OTHER DAY
     Route: 048
  6. DUODOPA [Suspect]
     Active Substance: CARBIDOPA\LEVODOPA
     Dosage: MD:6.8ML; CR:3.6ML/H; ED:1.7ML
     Route: 050
     Dates: start: 20190111, end: 201901
  7. DUODOPA [Suspect]
     Active Substance: CARBIDOPA\LEVODOPA
     Dosage: MD: 6.8ML; CR: 3.2ML/H; ED:1.7ML
     Route: 050
     Dates: start: 20190130

REACTIONS (9)
  - Drug ineffective [Recovering/Resolving]
  - On and off phenomenon [Recovering/Resolving]
  - Asthenia [Recovering/Resolving]
  - Malaise [Recovering/Resolving]
  - Hyperkinesia [Recovered/Resolved]
  - Drug ineffective [Recovering/Resolving]
  - Malaise [Recovering/Resolving]
  - Asthenia [Recovering/Resolving]
  - Device difficult to use [Unknown]

NARRATIVE: CASE EVENT DATE: 20181229
